FAERS Safety Report 17991758 (Version 2)
Quarter: 2020Q3

REPORT INFORMATION
  Report Type: Report from Study
  Country: US (occurrence: US)
  Receive Date: 20200708
  Receipt Date: 20200713
  Transmission Date: 20201103
  Serious: Yes (Hospitalization)
  Sender: FDA-Public Use
  Company Number: US-BEH-2020119800

PATIENT
  Age: 25 Year
  Sex: Female

DRUGS (1)
  1. HAEGARDA [Suspect]
     Active Substance: HUMAN C1-ESTERASE INHIBITOR
     Indication: ANGIOEDEMA
     Dosage: 7000 INTERNATIONAL UNIT, QOW
     Route: 065

REACTIONS (5)
  - Intensive care [Not Recovered/Not Resolved]
  - No adverse event [Unknown]
  - Product supply issue [Not Recovered/Not Resolved]
  - Product use in unapproved indication [Unknown]
  - Angioedema [Unknown]

NARRATIVE: CASE EVENT DATE: 2020
